FAERS Safety Report 8916484 (Version 2)
Quarter: 2014Q2

REPORT INFORMATION
  Report Type: Other
  Country: US (occurrence: US)
  Receive Date: 20121120
  Receipt Date: 20131122
  Transmission Date: 20141216
  Serious: Yes (Other)
  Sender: FDA-Public Use
  Company Number: US-ENDO PHARMACEUTICALS INC.-PROP20120056

PATIENT
  Sex: Male

DRUGS (1)
  1. PROPOXYPHENE HYDROCHLORIDE/ACETAMINOPHEN TABLETS [Suspect]
     Indication: PAIN MANAGEMENT
     Dosage: UNK
     Route: 048

REACTIONS (4)
  - Angina pectoris [Unknown]
  - Myocardial infarction [Unknown]
  - Dyspnoea [Unknown]
  - Asthenia [Unknown]
